FAERS Safety Report 25877830 (Version 1)
Quarter: 2025Q4

REPORT INFORMATION
  Report Type: Report from Study
  Country: US (occurrence: US)
  Receive Date: 20251003
  Receipt Date: 20251003
  Transmission Date: 20260117
  Serious: Yes (Hospitalization, Other)
  Sender: GILEAD
  Company Number: US-GILEAD-2025-0730757

PATIENT
  Sex: Female

DRUGS (28)
  1. AZTREONAM LYSINE [Suspect]
     Active Substance: AZTREONAM LYSINE
     Indication: Cystic fibrosis
     Dosage: 75 MG, TID (75MG INHALED THREE TIMES DAILY FOR 28 DAYS)
     Route: 055
     Dates: start: 20150421
  2. BENZONATATE [Concomitant]
     Active Substance: BENZONATATE
  3. BENTYL [Concomitant]
     Active Substance: DICYCLOMINE HYDROCHLORIDE
  4. CALCIUM [Concomitant]
     Active Substance: CALCIUM
  5. CARAFATE [Concomitant]
     Active Substance: SUCRALFATE
  6. ELIQUIS [Concomitant]
     Active Substance: APIXABAN
  7. FAMOTIDINE [Concomitant]
     Active Substance: FAMOTIDINE
  8. CYCLOBENZAPRINE [Concomitant]
     Active Substance: CYCLOBENZAPRINE
  9. GUAIFENESIN [Concomitant]
     Active Substance: GUAIFENESIN
  10. FLONASE [Concomitant]
     Active Substance: FLUTICASONE PROPIONATE
  11. FLUTICASON [FLUTICASONE] [Concomitant]
  12. LEVALBUTEROL [Concomitant]
     Active Substance: LEVALBUTEROL
  13. LEVAQUIN [Concomitant]
     Active Substance: LEVOFLOXACIN
  14. LORATADINE [Concomitant]
     Active Substance: LORATADINE
  15. OXYCODONE [Concomitant]
     Active Substance: OXYCODONE
  16. PANTOPRAZOLE [Concomitant]
     Active Substance: PANTOPRAZOLE
  17. MUCINEX [Concomitant]
     Active Substance: GUAIFENESIN
  18. PANCREAZE [Concomitant]
     Active Substance: PANCRELIPASE AMYLASE\PANCRELIPASE LIPASE\PANCRELIPASE PROTEASE
  19. PREDNISONE [Concomitant]
     Active Substance: PREDNISONE
  20. PROMETHAZINE [Concomitant]
     Active Substance: PROMETHAZINE HYDROCHLORIDE
  21. SEROQUEL [Concomitant]
     Active Substance: QUETIAPINE FUMARATE
  22. SERTRALINE [Concomitant]
     Active Substance: SERTRALINE HYDROCHLORIDE
  23. TOPAMAX [Concomitant]
     Active Substance: TOPIRAMATE
  24. TRAMADOL [Concomitant]
     Active Substance: TRAMADOL
  25. TRAZODONE [Concomitant]
     Active Substance: TRAZODONE HYDROCHLORIDE
  26. TRIKAFTA [Concomitant]
     Active Substance: ELEXACAFTOR\IVACAFTOR\TEZACAFTOR
  27. URSODIOL [Concomitant]
     Active Substance: URSODIOL
  28. ZOLOFT [Concomitant]
     Active Substance: SERTRALINE HYDROCHLORIDE

REACTIONS (1)
  - Pneumonia [Not Recovered/Not Resolved]
